FAERS Safety Report 5602978-7 (Version None)
Quarter: 2008Q1

REPORT INFORMATION
  Report Type: 
  Country: None (occurrence: None)
  Receive Date: 20080125
  Receipt Date: 20080115
  Transmission Date: 20080703
  Serious: Yes (Other)
  Sender: FDA-Public Use
  Company Number: US-PFIZER INC-2008006039

PATIENT
  Sex: Male
  Weight: 99.8 kg

DRUGS (3)
  1. CHANTIX [Suspect]
     Indication: SMOKING CESSATION THERAPY
     Dates: start: 20071101, end: 20071101
  2. CELEXA [Concomitant]
  3. LIPITOR [Concomitant]

REACTIONS (3)
  - DYSPNOEA [None]
  - SWELLING FACE [None]
  - URTICARIA [None]
